FAERS Safety Report 10020653 (Version 2)
Quarter: 2014Q3

REPORT INFORMATION
  Report Type: Spontaneous
  Country: JP (occurrence: None)
  Receive Date: 20131122
  Receipt Date: 20140710
  Transmission Date: 20150326
  Serious: Yes (Disabling, Other)
  Sender: FDA-Public Use
  Company Number: SYM-2013-12235

PATIENT
  Age: 50 Year
  Sex: Female

DRUGS (7)
  1. FAMOTIDINE D (FAMOTIDINE) (FAMOTIDINE) [Concomitant]
  2. ROZEREM (RAMELTEON) (RAMELTEON) [Concomitant]
  3. CHOREAZINE [Suspect]
     Active Substance: TETRABENAZINE
     Indication: HUNTINGTON^S DISEASE
     Route: 048
     Dates: start: 20130605, end: 20130831
  4. MEMARY (MEMANTINE HYDROCHLORIDE) (MEMANTINE HYDRCHLORIDE) [Concomitant]
  5. MEILAX (ETHYL LOFLAZEPATE) (ETHYL LOFLAZEPATE) [Concomitant]
  6. MYSLEE (ZOLPIDEM TARTRATE) (ZOLPIDEM TARTRATE) [Concomitant]
  7. RISPERDAL [Concomitant]
     Active Substance: RISPERIDONE

REACTIONS (5)
  - Altered state of consciousness [None]
  - Hypotension [None]
  - Hypoxic-ischaemic encephalopathy [None]
  - Asphyxia [None]
  - Aspiration [None]

NARRATIVE: CASE EVENT DATE: 20130831
